FAERS Safety Report 5453223-7 (Version None)
Quarter: 2007Q3

REPORT INFORMATION
  Report Type: 
  Country: None (occurrence: None)
  Receive Date: 20070914
  Receipt Date: 20070906
  Transmission Date: 20080115
  Serious: Yes (Other)
  Sender: FDA-Public Use
  Company Number: US-PFIZER INC-2007074852

PATIENT
  Sex: Female

DRUGS (3)
  1. GEODON [Suspect]
  2. EFFEXOR XR [Concomitant]
  3. SEROQUEL [Concomitant]

REACTIONS (1)
  - BLINDNESS [None]
